FAERS Safety Report 5572790-6 (Version None)
Quarter: 2007Q4

REPORT INFORMATION
  Report Type: 
  Country: None (occurrence: None)
  Receive Date: 20071223
  Receipt Date: 20071214
  Transmission Date: 20080405
  Serious: Yes (Other)
  Sender: FDA-Public Use
  Company Number: PHHO2007SG20555

PATIENT
  Age: 45 Year
  Sex: Male
  Weight: 65.5 kg

DRUGS (2)
  1. TELBIVUDINE [Suspect]
     Indication: HEPATITIS B
     Dosage: 600 MG,
     Route: 048
     Dates: start: 20070724, end: 20071214
  2. COMPARATOR PEGASYS [Suspect]
     Indication: HEPATITIS B
     Dosage: 180 UG,
     Route: 058
     Dates: start: 20070724, end: 20071214

REACTIONS (2)
  - HYPOAESTHESIA [None]
  - PERIPHERAL SENSORY NEUROPATHY [None]
